FAERS Safety Report 18453267 (Version 2)
Quarter: 2022Q2

REPORT INFORMATION
  Report Type: Spontaneous
  Country: CH (occurrence: CH)
  Receive Date: 20201102
  Receipt Date: 20220407
  Transmission Date: 20220721
  Serious: Yes (Other)
  Sender: FDA-Public Use
  Company Number: CH-SM-2020-16498

PATIENT
  Age: 85 Year
  Sex: Male

DRUGS (36)
  1. HALDOL [Interacting]
     Active Substance: HALOPERIDOL
     Indication: Product used for unknown indication
     Route: 065
     Dates: start: 20200911, end: 20200915
  2. HALDOL [Interacting]
     Active Substance: HALOPERIDOL
     Dosage: IF NECESSARY
     Route: 065
     Dates: start: 20200915, end: 20200918
  3. VIMPAT [Suspect]
     Active Substance: LACOSAMIDE
     Indication: Epilepsy
     Route: 048
     Dates: start: 20200630, end: 20200707
  4. VIMPAT [Suspect]
     Active Substance: LACOSAMIDE
     Indication: Epilepsy
     Route: 048
     Dates: start: 20200707, end: 20200710
  5. VIMPAT [Suspect]
     Active Substance: LACOSAMIDE
     Indication: Epilepsy
     Route: 048
     Dates: start: 20200710, end: 20200716
  6. VIMPAT [Suspect]
     Active Substance: LACOSAMIDE
     Indication: Epilepsy
     Route: 048
     Dates: start: 20200716, end: 20200804
  7. VIMPAT [Suspect]
     Active Substance: LACOSAMIDE
     Indication: Epilepsy
     Route: 048
     Dates: start: 20200804
  8. REMERON [Interacting]
     Active Substance: MIRTAZAPINE
     Indication: Mixed anxiety and depressive disorder
     Route: 048
     Dates: start: 20200803, end: 20200812
  9. REMERON [Interacting]
     Active Substance: MIRTAZAPINE
     Indication: Mixed anxiety and depressive disorder
     Route: 048
     Dates: start: 20200812, end: 20200827
  10. REMERON [Interacting]
     Active Substance: MIRTAZAPINE
     Indication: Mixed anxiety and depressive disorder
     Route: 048
     Dates: start: 20200827
  11. PREGABALIN [Suspect]
     Active Substance: PREGABALIN
     Indication: Epilepsy
     Route: 048
     Dates: start: 20200710, end: 20200717
  12. PREGABALIN [Suspect]
     Active Substance: PREGABALIN
     Indication: Epilepsy
     Route: 048
     Dates: start: 20200717, end: 20200720
  13. PREGABALIN [Suspect]
     Active Substance: PREGABALIN
     Indication: Epilepsy
     Route: 048
     Dates: start: 20200720, end: 20200723
  14. PREGABALIN [Suspect]
     Active Substance: PREGABALIN
     Indication: Epilepsy
     Route: 048
     Dates: start: 20200723, end: 20200727
  15. PREGABALIN [Suspect]
     Active Substance: PREGABALIN
     Indication: Epilepsy
     Route: 048
     Dates: start: 20200727, end: 20200914
  16. PREGABALIN [Suspect]
     Active Substance: PREGABALIN
     Indication: Epilepsy
     Route: 048
     Dates: start: 20200914
  17. QUETIAPINE [Suspect]
     Active Substance: QUETIAPINE
     Route: 048
     Dates: start: 20200710, end: 20200713
  18. QUETIAPINE [Suspect]
     Active Substance: QUETIAPINE
     Route: 048
     Dates: start: 20200713, end: 20200723
  19. QUETIAPINE [Suspect]
     Active Substance: QUETIAPINE
     Route: 048
     Dates: start: 20200713, end: 20200718
  20. QUETIAPINE [Suspect]
     Active Substance: QUETIAPINE
     Route: 048
     Dates: start: 20200723, end: 20200727
  21. QUETIAPINE [Suspect]
     Active Substance: QUETIAPINE
     Route: 048
     Dates: start: 20200718, end: 20200720
  22. QUETIAPINE [Suspect]
     Active Substance: QUETIAPINE
     Route: 048
     Dates: start: 20200730, end: 20200826
  23. QUETIAPINE [Suspect]
     Active Substance: QUETIAPINE
     Route: 048
     Dates: start: 20200727, end: 20200730
  24. QUETIAPINE [Suspect]
     Active Substance: QUETIAPINE
     Route: 048
     Dates: start: 20200826, end: 20200828
  25. QUETIAPINE [Suspect]
     Active Substance: QUETIAPINE
     Route: 048
     Dates: start: 20200828, end: 20200919
  26. QUETIAPINE [Suspect]
     Active Substance: QUETIAPINE
     Route: 048
     Dates: start: 20200921
  27. QUETIAPINE [Suspect]
     Active Substance: QUETIAPINE
     Route: 048
     Dates: start: 20200913
  28. BUPRENORPHINE [Concomitant]
     Active Substance: BUPRENORPHINE
     Dates: start: 20200828
  29. CEFTRIAXONE [Concomitant]
     Active Substance: CEFTRIAXONE
     Dates: start: 20200911, end: 20200911
  30. CEFUROXIME [Concomitant]
     Active Substance: CEFUROXIME
     Dates: start: 20200911, end: 20200917
  31. PROLIA [Concomitant]
     Active Substance: DENOSUMAB
     Dates: start: 20200921, end: 20200921
  32. ENOXAPARIN SODIUM [Concomitant]
     Active Substance: ENOXAPARIN SODIUM
     Dates: start: 20200625
  33. LORAZEPAM [Concomitant]
     Active Substance: LORAZEPAM
     Dates: start: 20200922, end: 20200923
  34. MELATONIN [Concomitant]
     Active Substance: MELATONIN
     Dates: start: 20200719
  35. DAFALGAN [Concomitant]
     Active Substance: ACETAMINOPHEN
     Dates: start: 20200710
  36. SILODOSIN [Concomitant]
     Active Substance: SILODOSIN
     Dates: start: 20200814

REACTIONS (3)
  - Toxic encephalopathy [Recovered/Resolved]
  - Drug interaction [Not Recovered/Not Resolved]
  - Myoclonus [Recovered/Resolved]

NARRATIVE: CASE EVENT DATE: 20200901
